FAERS Safety Report 10101544 (Version 2)
Quarter: 2014Q2

REPORT INFORMATION
  Report Type: Spontaneous
  Country: US (occurrence: US)
  Receive Date: 20140424
  Receipt Date: 20140626
  Transmission Date: 20141212
  Serious: No
  Sender: FDA-Public Use
  Company Number: US-009507513-1404USA012325

PATIENT
  Sex: Female
  Weight: 95.24 kg

DRUGS (18)
  1. OXYTROL FOR WOMEN [Suspect]
     Indication: POLLAKIURIA
     Dosage: UNK, UNKNOWN
     Route: 062
     Dates: start: 201401
  2. OXYTROL FOR WOMEN [Suspect]
     Indication: MICTURITION URGENCY
  3. DULOXETINE HYDROCHLORIDE [Concomitant]
     Indication: DEPRESSION
     Dosage: UNK, UNKNOWN
  4. VOLTAREN [Concomitant]
     Indication: FIBROMYALGIA
     Dosage: UNK, UNKNOWN
  5. ROBAXIN [Concomitant]
     Indication: FIBROMYALGIA
     Dosage: UNK, UNKNOWN
  6. ATENOLOL [Concomitant]
     Indication: HYPERTENSION
     Dosage: UNK, UNKNOWN
  7. MAXIDE [Concomitant]
     Indication: HYPERTENSION
     Dosage: UNK, UNKNOWN
  8. LOVASTATIN [Concomitant]
     Indication: BLOOD CHOLESTEROL INCREASED
     Dosage: UNK, UNKNOWN
  9. CETRIZINE [Concomitant]
     Indication: HYPERSENSITIVITY
     Dosage: UNK, UNKNOWN
  10. CETRIZINE [Concomitant]
     Indication: ASTHMA
  11. FLUNISOLIDE [Concomitant]
     Indication: HYPERSENSITIVITY
     Dosage: UNK, UNKNOWN
  12. FLUNISOLIDE [Concomitant]
     Indication: ASTHMA
  13. PROVENTIL [Concomitant]
     Indication: HYPERSENSITIVITY
     Dosage: UNK, UNKNOWN
  14. PROVENTIL [Concomitant]
     Indication: ASTHMA
  15. AZELASTINE HYDROCHLORIDE [Concomitant]
     Indication: HYPERSENSITIVITY
     Dosage: UNK, UNKNOWN
  16. AZELASTINE HYDROCHLORIDE [Concomitant]
     Indication: ASTHMA
  17. BENADRYL [Concomitant]
     Indication: HYPERSENSITIVITY
     Dosage: UNK, UNKNOWN
  18. BENADRYL [Concomitant]
     Indication: ASTHMA

REACTIONS (2)
  - Intentional product misuse [Unknown]
  - Product adhesion issue [Unknown]
